FAERS Safety Report 16392605 (Version 1)
Quarter: 2019Q2

REPORT INFORMATION
  Report Type: Spontaneous
  Country: RO (occurrence: RO)
  Receive Date: 20190605
  Receipt Date: 20190605
  Transmission Date: 20190711
  Serious: Yes (Congenital Anomaly, Other)
  Sender: FDA-Public Use
  Company Number: RO-ACCORD-131093

PATIENT
  Sex: Female

DRUGS (7)
  1. TACROLIMUS. [Suspect]
     Active Substance: TACROLIMUS
     Dosage: 8 MG, DAILY, ALSO TAKEN 6 MG DAILY
     Route: 064
  2. MEDROL [Suspect]
     Active Substance: METHYLPREDNISOLONE
     Indication: CHOLANGITIS ACUTE
     Dosage: UNK
     Route: 064
  3. MEROPENEM. [Suspect]
     Active Substance: MEROPENEM
     Indication: CHOLANGITIS ACUTE
     Route: 064
  4. MEDROL [Suspect]
     Active Substance: METHYLPREDNISOLONE
     Dosage: MATERNAL DOSE: 24MG/DAY, ALSO TAKEN 16 MG(MATERNAL DOSE: 16MG/DAY ORALLY)
     Route: 064
  5. SOLU-MEDROL [Suspect]
     Active Substance: METHYLPREDNISOLONE SODIUM SUCCINATE
     Dosage: 500 MG, DAILY (FOR 2 DAYS), ALSO TAKEN 1000 MG,DAILY (FOR 3 DAYS)
     Route: 064
  6. METRONIDAZOLE. [Suspect]
     Active Substance: METRONIDAZOLE
     Indication: CHOLANGITIS ACUTE
     Route: 064
  7. MEDROL [Suspect]
     Active Substance: METHYLPREDNISOLONE
     Indication: FOETAL EXPOSURE DURING PREGNANCY
     Dosage: MATERNAL DOSE: 16MG/DAY ORALLY
     Route: 064

REACTIONS (5)
  - Calcification of muscle [Recovered/Resolved]
  - Apgar score low [Recovered/Resolved]
  - Foetal exposure during pregnancy [Unknown]
  - Low birth weight baby [Recovered/Resolved]
  - Congenital choroid plexus cyst [Recovered/Resolved]
